FAERS Safety Report 9780482 (Version 3)
Quarter: 2014Q2

REPORT INFORMATION
  Report Type: Report from Study
  Country: US (occurrence: US)
  Receive Date: 20131224
  Receipt Date: 20140626
  Transmission Date: 20141212
  Serious: Yes (Other)
  Sender: FDA-Public Use
  Company Number: US-BIOGENIDEC-2013BI121876

PATIENT
  Age: 48 Year
  Sex: Female

DRUGS (20)
  1. TECFIDERA [Suspect]
     Indication: MULTIPLE SCLEROSIS
     Route: 048
     Dates: start: 201309, end: 201312
  2. TECFIDERA [Suspect]
     Indication: MULTIPLE SCLEROSIS
     Route: 048
     Dates: start: 201307, end: 201310
  3. ADVAIR DISKUS [Concomitant]
  4. ASPIRIN EC [Concomitant]
  5. BIOTIN [Concomitant]
  6. CLARITIN [Concomitant]
  7. DESONIDE [Concomitant]
  8. FOLIC ACID [Concomitant]
  9. MAGNESIUM OXIDE [Concomitant]
  10. METHOTREXATE [Concomitant]
  11. METROGEL [Concomitant]
  12. NAPROSYN [Concomitant]
  13. NASONEX [Concomitant]
  14. PLAQUENIL [Concomitant]
  15. VITAMIN A + D GRX [Concomitant]
  16. VITAMIN D-3 [Concomitant]
  17. XOLAIR [Concomitant]
  18. PROVENTIL HFA [Concomitant]
  19. SULFASALAZINE [Concomitant]
  20. MULTIVITAMIN [Concomitant]

REACTIONS (1)
  - Breast cancer [Unknown]
